FAERS Safety Report 21345734 (Version 4)
Quarter: 2022Q4

REPORT INFORMATION
  Report Type: Spontaneous
  Country: BR (occurrence: BR)
  Receive Date: 20220916
  Receipt Date: 20221103
  Transmission Date: 20230113
  Serious: Yes (Other)
  Sender: FDA-Public Use
  Company Number: BR-NOVARTISPH-NVSC2022BR208354

PATIENT
  Sex: Female

DRUGS (2)
  1. AMOXICILLIN\CLAVULANATE POTASSIUM [Suspect]
     Active Substance: AMOXICILLIN\CLAVULANATE POTASSIUM
     Indication: Product used for unknown indication
     Dosage: UNK (250+62.5 MG/ 5ML 75 ML)
     Route: 065
  2. AMOXICILLIN\CLAVULANATE POTASSIUM [Suspect]
     Active Substance: AMOXICILLIN\CLAVULANATE POTASSIUM
     Dosage: UNK (250+62.5 MG/ 5ML 75 ML)
     Route: 065
     Dates: end: 20220914

REACTIONS (5)
  - Hypothermia [Not Recovered/Not Resolved]
  - Hypothermia [Recovered/Resolved]
  - Body temperature decreased [Unknown]
  - Pyrexia [Unknown]
  - Product preparation issue [Unknown]
